FAERS Safety Report 11242049 (Version 1)
Quarter: 2015Q3

REPORT INFORMATION
  Report Type: Report from Study
  Country: JP (occurrence: JP)
  Receive Date: 20150706
  Receipt Date: 20150706
  Transmission Date: 20151125
  Serious: Yes (Other)
  Sender: FDA-Public Use
  Company Number: PHJP2015JP005956

PATIENT
  Age: 11 Year
  Sex: Male
  Weight: 33 kg

DRUGS (16)
  1. ACZ885 [Suspect]
     Active Substance: CANAKINUMAB
     Indication: MUCKLE-WELLS SYNDROME
     Dosage: 64 MG, UNK
     Route: 058
     Dates: start: 20140225
  2. ACZ885 [Suspect]
     Active Substance: CANAKINUMAB
     Dosage: 128 MG, UNK
     Route: 058
     Dates: start: 20140602
  3. BRUFEN ^ABBOTT^ [Concomitant]
     Active Substance: IBUPROFEN
     Dosage: 900 MG, UNK
     Route: 048
     Dates: start: 20140922
  4. ALLELOCK [Concomitant]
     Active Substance: OLOPATADINE HYDROCHLORIDE
     Indication: PRODUCT USED FOR UNKNOWN INDICATION
     Dosage: 10 MG, UNK
     Route: 048
     Dates: start: 20140225
  5. ACZ885 [Suspect]
     Active Substance: CANAKINUMAB
     Dosage: 294 MG, UNK
     Route: 058
     Dates: start: 20141014
  6. CARBOCISTEINE [Concomitant]
     Active Substance: CARBOCYSTEINE
     Indication: PRODUCT USED FOR UNKNOWN INDICATION
     Dosage: 500 MG, UNK
     Route: 048
     Dates: start: 20140811, end: 20141217
  7. ACZ885 [Suspect]
     Active Substance: CANAKINUMAB
     Dosage: 216 MG, UNK
     Route: 058
     Dates: start: 20140916
  8. ACZ885 [Suspect]
     Active Substance: CANAKINUMAB
     Dosage: 300 MG, UNK
     Route: 058
     Dates: start: 20141113
  9. ACZ885 [Suspect]
     Active Substance: CANAKINUMAB
     Dosage: 300 MG, UNK
     Route: 058
     Dates: start: 20150115
  10. NEXIUM 1-2-3 [Concomitant]
     Active Substance: AMOXICILLIN\CLARITHROMYCIN\ESOMEPRAZOLE
     Indication: PROPHYLAXIS
     Dosage: 10 MG, UNK
     Route: 048
     Dates: start: 20150115
  11. ACZ885 [Suspect]
     Active Substance: CANAKINUMAB
     Dosage: 128 MG, UNK
     Route: 058
     Dates: start: 20140408
  12. ONON [Concomitant]
     Active Substance: PRANLUKAST
     Indication: PRODUCT USED FOR UNKNOWN INDICATION
     Dosage: 210 MG, UNK
     Route: 048
     Dates: start: 20140203, end: 20141217
  13. ACZ885 [Suspect]
     Active Substance: CANAKINUMAB
     Dosage: 128 MG, UNK
     Route: 058
     Dates: start: 20140724
  14. ACZ885 [Suspect]
     Active Substance: CANAKINUMAB
     Dosage: 300 MG, UNK
     Route: 058
     Dates: start: 20141218
  15. BRUFEN ^ABBOTT^ [Concomitant]
     Active Substance: IBUPROFEN
     Indication: MUCKLE-WELLS SYNDROME
     Dosage: 300 MG, UNK
     Route: 048
     Dates: end: 20140921
  16. GASTER [Concomitant]
     Active Substance: FAMOTIDINE
     Indication: PROPHYLAXIS
     Dosage: 10 MG, UNK
     Route: 048
     Dates: start: 20130913, end: 20150114

REACTIONS (4)
  - Gastroenteritis [Recovering/Resolving]
  - Cough [Recovering/Resolving]
  - Diarrhoea [Recovering/Resolving]
  - Bronchitis [Recovering/Resolving]

NARRATIVE: CASE EVENT DATE: 20140926
